FAERS Safety Report 13472526 (Version 1)
Quarter: 2017Q2

REPORT INFORMATION
  Report Type: Spontaneous
  Country: US (occurrence: US)
  Receive Date: 20170423
  Receipt Date: 20170423
  Transmission Date: 20170830
  Serious: Yes (Disabling)
  Sender: FDA-Public Use
  Company Number: None

PATIENT
  Age: 65 Year
  Sex: Female
  Weight: 78.75 kg

DRUGS (16)
  1. BIOTIN [Concomitant]
     Active Substance: BIOTIN
  2. CITALOPRAM [Suspect]
     Active Substance: CITALOPRAM HYDROBROMIDE
     Indication: DEPRESSION
     Route: 048
     Dates: start: 20100101, end: 20151231
  3. GLUCOSAMINE [Concomitant]
     Active Substance: GLUCOSAMINE
  4. COLLAGEN [Concomitant]
     Active Substance: COLLAGEN
  5. MAGNESIUM [Concomitant]
     Active Substance: MAGNESIUM
  6. SERTRALINE [Suspect]
     Active Substance: SERTRALINE HYDROCHLORIDE
     Indication: DEPRESSION
     Route: 048
     Dates: start: 20100101, end: 20151231
  7. GABAPENTIN. [Concomitant]
     Active Substance: GABAPENTIN
  8. FISH OIL [Concomitant]
     Active Substance: FISH OIL
  9. VITAMIN DEC [Concomitant]
  10. VITAMINS [Concomitant]
     Active Substance: VITAMINS
  11. OMEPRAZOLE. [Concomitant]
     Active Substance: OMEPRAZOLE
  12. DULOXETINE. [Concomitant]
     Active Substance: DULOXETINE
  13. CLONAZEPAM. [Concomitant]
     Active Substance: CLONAZEPAM
  14. ACYCLOVIR. [Concomitant]
     Active Substance: ACYCLOVIR
  15. PILOCARPINE. [Concomitant]
     Active Substance: PILOCARPINE
  16. VITAMIN E [Concomitant]
     Active Substance: .ALPHA.-TOCOPHEROL

REACTIONS (3)
  - Visual impairment [None]
  - Miosis [None]
  - Vitreous floaters [None]

NARRATIVE: CASE EVENT DATE: 20100101
